FAERS Safety Report 25006683 (Version 1)
Quarter: 2025Q1

REPORT INFORMATION
  Report Type: Report from Study
  Country: US (occurrence: US)
  Receive Date: 20250225
  Receipt Date: 20250225
  Transmission Date: 20250409
  Serious: Yes (Other)
  Sender: ABBVIE
  Company Number: US-ABBVIE-6135538

PATIENT
  Age: 70 Year
  Sex: Male

DRUGS (1)
  1. RINVOQ [Suspect]
     Active Substance: UPADACITINIB
     Indication: Psoriatic arthropathy
     Dosage: FORM STRENGTH-15 MG
     Route: 048
     Dates: start: 20241006, end: 202501

REACTIONS (22)
  - Intestinal obstruction [Unknown]
  - Productive cough [Not Recovered/Not Resolved]
  - Flank pain [Unknown]
  - Pericardial effusion [Unknown]
  - Leukocytosis [Recovering/Resolving]
  - Constipation [Unknown]
  - Fatigue [Unknown]
  - Pyrexia [Recovered/Resolved]
  - Pleural effusion [Unknown]
  - Thrombocytosis [Not Recovered/Not Resolved]
  - Anaemia [Not Recovered/Not Resolved]
  - Chest pain [Unknown]
  - Malaise [Unknown]
  - Decreased appetite [Unknown]
  - Night sweats [Unknown]
  - Abdominal pain [Not Recovered/Not Resolved]
  - Serum ferritin increased [Unknown]
  - Atelectasis [Unknown]
  - Cardiomegaly [Unknown]
  - Abdominal discomfort [Unknown]
  - Arthritis [Unknown]
  - Arthralgia [Unknown]

NARRATIVE: CASE EVENT DATE: 20241201
